FAERS Safety Report 24007753 (Version 2)
Quarter: 2025Q1

REPORT INFORMATION
  Report Type: Spontaneous
  Country: CA (occurrence: CA)
  Receive Date: 20240625
  Receipt Date: 20250203
  Transmission Date: 20250409
  Serious: Yes (Other)
  Sender: TAKEDA
  Company Number: CA-TAKEDA-2024TUS061571

PATIENT
  Age: 55 Year
  Sex: Male

DRUGS (2)
  1. VYVANSE [Suspect]
     Active Substance: LISDEXAMFETAMINE DIMESYLATE
     Indication: Product used for unknown indication
  2. OCRELIZUMAB [Suspect]
     Active Substance: OCRELIZUMAB
     Indication: Relapsing multiple sclerosis
     Dosage: 300 MILLIGRAM, Q2WEEKS
     Dates: start: 20191217

REACTIONS (10)
  - Progressive multiple sclerosis [Unknown]
  - Skin lesion [Unknown]
  - Electric shock [Not Recovered/Not Resolved]
  - Skin mass [Not Recovered/Not Resolved]
  - Dry skin [Not Recovered/Not Resolved]
  - Oral mucosal blistering [Recovering/Resolving]
  - Acne [Not Recovered/Not Resolved]
  - Insomnia [Not Recovered/Not Resolved]
  - Anal incontinence [Not Recovered/Not Resolved]
  - Therapeutic product effect decreased [Unknown]

NARRATIVE: CASE EVENT DATE: 20220201
